FAERS Safety Report 4862980-X (Version None)
Quarter: 2005Q4

REPORT INFORMATION
  Report Type: 
  Country: None (occurrence: None)
  Receive Date: 20051221
  Receipt Date: 20050909
  Transmission Date: 20060501
  Serious: Yes (Hospitalization, Disabling)
  Sender: FDA-Public Use
  Company Number: US-MERCK-0509USA01482

PATIENT
  Age: 55 Year
  Sex: Male
  Weight: 92 kg

DRUGS (5)
  1. VIOXX [Suspect]
     Indication: BACK PAIN
     Route: 048
     Dates: start: 20021008, end: 20040801
  2. VIOXX [Suspect]
     Indication: SHOULDER PAIN
     Route: 048
     Dates: start: 20021008, end: 20040801
  3. WELLBUTRIN [Concomitant]
     Indication: ANXIETY
     Route: 065
     Dates: start: 20010515, end: 20031101
  4. WELLBUTRIN [Concomitant]
     Indication: ALCOHOLISM
     Route: 065
     Dates: start: 20010515, end: 20031101
  5. XANAX [Concomitant]
     Route: 065

REACTIONS (17)
  - ACUTE MYOCARDIAL INFARCTION [None]
  - ADVERSE DRUG REACTION [None]
  - ANXIETY [None]
  - BACK INJURY [None]
  - BACK PAIN [None]
  - CARDIAC DISORDER [None]
  - CORONARY ARTERY DISEASE [None]
  - EMOTIONAL DISTRESS [None]
  - HYPERTENSION [None]
  - JOINT SPRAIN [None]
  - MUSCLE STRAIN [None]
  - PRURITUS [None]
  - RASH [None]
  - SHOULDER PAIN [None]
  - SOMNOLENCE [None]
  - URTICARIA [None]
  - VIRAL INFECTION [None]
